FAERS Safety Report 23070513 (Version 2)
Quarter: 2023Q4

REPORT INFORMATION
  Report Type: Spontaneous
  Country: GB (occurrence: GB)
  Receive Date: 20231016
  Receipt Date: 20231109
  Transmission Date: 20240109
  Serious: Yes (Other)
  Sender: FDA-Public Use
  Company Number: GB-MHRA-MED-202310082105274790-KPMDF

PATIENT
  Age: 40 Year
  Sex: Female
  Weight: 73 kg

DRUGS (1)
  1. DOXYCYCLINE [Suspect]
     Active Substance: DOXYCYCLINE
     Indication: Ureaplasma infection
     Dosage: 100MG TWO TAKEN THE FIRST DAY, AND THEREAFTER ONE A DAY
     Dates: start: 20231001, end: 20231007

REACTIONS (9)
  - Suicidal ideation [Recovered/Resolved]
  - Anxiety [Recovered/Resolved with Sequelae]
  - Major depression [Recovered/Resolved]
  - Brain fog [Recovered/Resolved]
  - Crying [Recovering/Resolving]
  - Insomnia [Recovered/Resolved]
  - Tremor [Recovered/Resolved with Sequelae]
  - Feeling of despair [Recovering/Resolving]
  - Negative thoughts [Recovering/Resolving]

NARRATIVE: CASE EVENT DATE: 20231006
